FAERS Safety Report 7506960-4 (Version None)
Quarter: 2011Q2

REPORT INFORMATION
  Report Type: 
  Country: None (occurrence: None)
  Receive Date: 20110526
  Receipt Date: 20110519
  Transmission Date: 20111010
  Serious: Yes (Hospitalization)
  Sender: FDA-Public Use
  Company Number: JP-GENZYME-FABR-1001941

PATIENT
  Sex: Female
  Weight: 38 kg

DRUGS (14)
  1. FABRAZYME [Suspect]
     Dosage: 25 MG, Q2W
     Route: 042
     Dates: start: 20101214
  2. SPIRONOLACTONE [Concomitant]
     Indication: FABRY'S DISEASE
     Dosage: 25 MG, QD
  3. ALLOPURINOL [Concomitant]
     Indication: PRODUCT USED FOR UNKNOWN INDICATION
     Dosage: 100 MG, QD
  4. ASPIRIN [Concomitant]
     Indication: FABRY'S DISEASE
     Dosage: 100 MG, QD
     Dates: start: 20110112
  5. TRICHLORMETHIAZIDE [Concomitant]
     Indication: FABRY'S DISEASE
     Dosage: 2 MG, QD
     Dates: start: 20090609
  6. MOSAPRIDE CITRATE [Concomitant]
     Indication: PRODUCT USED FOR UNKNOWN INDICATION
     Dosage: UNK
  7. FUROSEMIDE [Concomitant]
     Indication: FABRY'S DISEASE
     Dosage: 40 MG, QD
  8. POTASSIUM CHLORIDE [Concomitant]
     Indication: PRODUCT USED FOR UNKNOWN INDICATION
     Dosage: 600 MG, QD
     Dates: start: 20101005
  9. FAMOTIDINE [Concomitant]
     Indication: PRODUCT USED FOR UNKNOWN INDICATION
     Dosage: 20 MG, QD
  10. CARVEDILOL [Concomitant]
     Indication: FABRY'S DISEASE
     Dosage: 2.5 MG, QD
     Dates: start: 20101213
  11. WARFARIN POTASSIUM [Concomitant]
     Indication: PRODUCT USED FOR UNKNOWN INDICATION
     Dosage: 2 MG, QD
  12. CLOSTRIDIUM BUTYRICUM [Concomitant]
     Indication: PRODUCT USED FOR UNKNOWN INDICATION
     Dosage: 40 MG, TID
  13. FABRAZYME [Suspect]
     Dosage: 35 MG, UNK
     Route: 042
     Dates: start: 20090101, end: 20101130
  14. FABRAZYME [Suspect]
     Indication: FABRY'S DISEASE
     Dosage: 50 MG, Q2W
     Route: 042
     Dates: start: 20041005, end: 20090101

REACTIONS (1)
  - CARDIAC FAILURE [None]
